FAERS Safety Report 13151321 (Version 1)
Quarter: 2017Q1

REPORT INFORMATION
  Report Type: Spontaneous
  Country: DE (occurrence: DE)
  Receive Date: 20170125
  Receipt Date: 20170125
  Transmission Date: 20170428
  Serious: Yes (Hospitalization)
  Sender: FDA-Public Use
  Company Number: DE-INGENUS PHARMACEUTICALS NJ, LLC-ING201701-000024

PATIENT
  Age: 70 Year
  Sex: Male

DRUGS (11)
  1. SIMVASTATIN. [Suspect]
     Active Substance: SIMVASTATIN
  2. ACETYLSALICYLIC ACID [Concomitant]
     Active Substance: ASPIRIN
  3. METOPROLOL. [Concomitant]
     Active Substance: METOPROLOL
  4. FUROSEMIDE. [Concomitant]
     Active Substance: FUROSEMIDE
  5. ISOSORBIDE DINITRATE. [Concomitant]
     Active Substance: ISOSORBIDE DINITRATE
  6. PROBENECID AND COLCHICINE [Suspect]
     Active Substance: COLCHICINE\PROBENECID
  7. RIVAROXABAN [Concomitant]
     Active Substance: RIVAROXABAN
  8. MOLSIDOMINE [Concomitant]
     Active Substance: MOLSIDOMINE
  9. PANTOPRAZOLE [Concomitant]
     Active Substance: PANTOPRAZOLE SODIUM
  10. RAMIPRIL. [Concomitant]
     Active Substance: RAMIPRIL
  11. INSULIN [Concomitant]
     Active Substance: INSULIN NOS

REACTIONS (2)
  - Drug interaction [Recovered/Resolved]
  - Rhabdomyolysis [Recovered/Resolved]
